FAERS Safety Report 19904199 (Version 2)
Quarter: 2021Q4

REPORT INFORMATION
  Report Type: Spontaneous
  Country: US (occurrence: US)
  Receive Date: 20210930
  Receipt Date: 20211103
  Transmission Date: 20220303
  Serious: Yes (Hospitalization)
  Sender: FDA-Public Use
  Company Number: US-SAOL THERAPEUTICS-2021SAO00323

PATIENT
  Age: 15 Year
  Sex: Female
  Weight: 60 kg

DRUGS (9)
  1. LIORESAL [Suspect]
     Active Substance: BACLOFEN
     Indication: Muscle spasticity
     Dosage: 50 ?G, \DAY
     Route: 037
     Dates: start: 20210719, end: 2021
  2. LIORESAL [Suspect]
     Active Substance: BACLOFEN
     Indication: Hyperreflexia
     Dosage: 56 ?G, \DAY
     Route: 037
     Dates: start: 20210719, end: 20210915
  3. LIORESAL [Suspect]
     Active Substance: BACLOFEN
     Indication: Myoclonus
     Dosage: 25 ?G, \DAY
     Route: 037
     Dates: start: 20210915, end: 20210917
  4. LIORESAL [Suspect]
     Active Substance: BACLOFEN
     Dosage: 35 ?G, \DAY; 42% INCREASE
     Route: 037
     Dates: start: 20210917, end: 20210917
  5. LIORESAL [Suspect]
     Active Substance: BACLOFEN
     Dosage: 56 ?G, \DAY; 56% INCREASE
     Route: 037
     Dates: start: 20210917
  6. BACLOFEN [Suspect]
     Active Substance: BACLOFEN
     Dosage: 15 MG, 2X/DAY
     Route: 048
     Dates: end: 20210915
  7. BACLOFEN [Suspect]
     Active Substance: BACLOFEN
     Dosage: 10 MG, EVERY 8 HOURS AS NEEDED
  8. CLONAZEPAM [Concomitant]
     Active Substance: CLONAZEPAM
     Dosage: 0.25 MG, 2X/DAY
     Route: 048
  9. DIAZEPAM [Concomitant]
     Active Substance: DIAZEPAM
     Dosage: 5 MG, EVERY 8 HOURS AS NEEDED
     Route: 048

REACTIONS (9)
  - Mydriasis [Recovered/Resolved]
  - Overdose [Recovered/Resolved]
  - Unresponsive to stimuli [Recovered/Resolved]
  - Bradycardia [Recovered/Resolved]
  - Hypotension [Recovered/Resolved]
  - Mental status changes [Unknown]
  - Muscle spasticity [Unknown]
  - Hyperreflexia [Unknown]
  - Myoclonus [Unknown]

NARRATIVE: CASE EVENT DATE: 20210915
